FAERS Safety Report 23480000 (Version 1)
Quarter: 2024Q1

REPORT INFORMATION
  Report Type: Spontaneous
  Country: FR (occurrence: FR)
  Receive Date: 20240205
  Receipt Date: 20240205
  Transmission Date: 20240410
  Serious: Yes (Hospitalization, Other)
  Sender: FDA-Public Use
  Company Number: FR-AFSSAPS-RN2024000070

PATIENT
  Age: 86 Year
  Sex: Male
  Weight: 78.7 kg

DRUGS (1)
  1. APIXABAN [Suspect]
     Active Substance: APIXABAN
     Indication: Atrial fibrillation
     Dosage: UNK (1 IN MORNING AND 1 IN EVENING)
     Route: 048
     Dates: end: 20231229

REACTIONS (1)
  - Haemothorax [Recovered/Resolved with Sequelae]

NARRATIVE: CASE EVENT DATE: 20231228
